FAERS Safety Report 4491467-1 (Version None)
Quarter: 2004Q4

REPORT INFORMATION
  Report Type: 
  Country: None (occurrence: None)
  Receive Date: 20041103
  Receipt Date: 20041103
  Transmission Date: 20050328
  Serious: No
  Sender: FDA-Public Use
  Company Number: None

PATIENT

DRUGS (3)
  1. TRIAMCINOLONE [Suspect]
     Dosage: CREAM
  2. TETRACAINE/ADRENALINE/COCAINE [Suspect]
     Dosage: TROCHE/LOZENGE
  3. TACROLIMUS [Suspect]
     Dosage: TROCHEL/LOZENGE

REACTIONS (1)
  - MEDICATION ERROR [None]
